FAERS Safety Report 12393379 (Version 1)
Quarter: 2016Q2

REPORT INFORMATION
  Report Type: Spontaneous
  Country: US (occurrence: None)
  Receive Date: 20160520
  Receipt Date: 20160520
  Transmission Date: 20160815
  Serious: Yes (Other)
  Sender: FDA-Public Use
  Company Number: None

PATIENT
  Age: 37 Year
  Sex: Female
  Weight: 47.63 kg

DRUGS (1)
  1. METHOCARBAMOL 500MG TAB, 500 MG NDC 60429011805 [Suspect]
     Active Substance: METHOCARBAMOL
     Route: 048

REACTIONS (2)
  - Fatigue [None]
  - Antinuclear antibody positive [None]

NARRATIVE: CASE EVENT DATE: 20160519
